FAERS Safety Report 8409133-6 (Version None)
Quarter: 2012Q2

REPORT INFORMATION
  Report Type: 
  Country: None (occurrence: None)
  Receive Date: 20120604
  Receipt Date: 20120525
  Transmission Date: 20120825
  Serious: Yes (Hospitalization)
  Sender: FDA-Public Use
  Company Number: KR-ABBOTT-10P-090-0658211-00

PATIENT
  Age: 55 Year
  Sex: Male
  Weight: 64 kg

DRUGS (17)
  1. 3TC/AZT [Concomitant]
     Indication: ANTIRETROVIRAL THERAPY
     Dates: start: 20091102
  2. DENOGAN [Concomitant]
     Indication: ANALGESIC THERAPY
     Dosage: 1G/5ML VIAL
     Route: 042
     Dates: start: 20100319, end: 20100319
  3. OCUTROPINE EYE DROPS [Concomitant]
     Indication: POSTOPERATIVE CARE
     Dosage: 10MG/ML 5 ML
     Route: 047
     Dates: start: 20100319, end: 20100326
  4. DIFLUCAN [Concomitant]
     Indication: ORAL FUNGAL INFECTION
     Route: 048
     Dates: start: 20091028, end: 20091108
  5. IPAROSIN [Concomitant]
     Indication: ANTIBIOTIC PROPHYLAXIS
     Route: 042
     Dates: start: 20100318, end: 20100318
  6. GREENCROSS INFLUENZA HA VACCINE [Concomitant]
     Indication: INFLUENZA IMMUNISATION
     Dosage: 1ML VIAL
     Route: 030
     Dates: start: 20100201, end: 20100201
  7. ATACAND [Concomitant]
     Indication: PROTEINURIA
     Route: 048
     Dates: start: 20100719
  8. KUNWHA SOMALGEN [Concomitant]
     Indication: ANTACID THERAPY
     Route: 048
     Dates: start: 20100319, end: 20100325
  9. MIYARISAN-VITA [Concomitant]
     Indication: GASTROINTESTINAL DISORDER
     Route: 048
     Dates: start: 20100319, end: 20100325
  10. IBRUPROFEN [Concomitant]
     Indication: ORAL HERPES
     Dosage: 1200 MG DAILY
     Route: 048
     Dates: start: 20100816, end: 20100822
  11. KALETRA [Suspect]
     Indication: HIV INFECTION
     Dates: start: 20091102
  12. VALTREX [Concomitant]
     Dosage: 2 TABS DAILY
     Route: 048
     Dates: start: 20101116, end: 20101129
  13. IBRUPROFEN [Concomitant]
     Indication: PAIN MANAGEMENT
     Dosage: 1200 MG DAILY
     Route: 048
     Dates: start: 20101116, end: 20101129
  14. TOBRADEX [Concomitant]
     Indication: POSTOPERATIVE CARE
     Route: 047
     Dates: start: 20100319, end: 20100326
  15. VARIDASE [Concomitant]
     Indication: DYSPEPSIA
     Dates: start: 20100319, end: 20100325
  16. VALTREX [Concomitant]
     Indication: ORAL HERPES
     Dosage: 2 TABS DAILY
     Route: 048
     Dates: start: 20100816, end: 20100822
  17. XALATAN [Concomitant]
     Indication: POSTOPERATIVE CARE
     Dosage: 50 MCG/ML 2.5 ML
     Route: 047
     Dates: start: 20100611, end: 20100617

REACTIONS (9)
  - RETINAL HAEMORRHAGE [None]
  - UPPER RESPIRATORY TRACT INFECTION [None]
  - GLAUCOMA [None]
  - PROTEINURIA [None]
  - DYSPEPSIA [None]
  - ORAL HERPES [None]
  - FATIGUE [None]
  - RASH [None]
  - PNEUMONIA [None]
